FAERS Safety Report 7933378-2 (Version None)
Quarter: 2011Q4

REPORT INFORMATION
  Report Type: 
  Country: None (occurrence: None)
  Receive Date: 20111122
  Receipt Date: 20111122
  Transmission Date: 20120403
  Serious: Yes (Other)
  Sender: FDA-Public Use
  Company Number: None

PATIENT
  Age: 49 Year
  Sex: Female
  Weight: 68.946 kg

DRUGS (1)
  1. GABAPENTIN [Suspect]
     Indication: PAIN
     Dosage: 300MG
     Route: 048
     Dates: start: 20111110, end: 20111116

REACTIONS (15)
  - DIZZINESS [None]
  - SUICIDAL IDEATION [None]
  - ANXIETY [None]
  - MUSCULOSKELETAL STIFFNESS [None]
  - SOMNOLENCE [None]
  - CHEST DISCOMFORT [None]
  - DYSPNOEA [None]
  - VISION BLURRED [None]
  - INFLUENZA LIKE ILLNESS [None]
  - MALAISE [None]
  - MUSCLE SPASMS [None]
  - FATIGUE [None]
  - RESTLESSNESS [None]
  - DEPRESSION [None]
  - CONDITION AGGRAVATED [None]
